FAERS Safety Report 10114490 (Version 3)
Quarter: 2014Q2

REPORT INFORMATION
  Report Type: Report from Study
  Country: NL (occurrence: NL)
  Receive Date: 20140426
  Receipt Date: 20140623
  Transmission Date: 20141212
  Serious: Yes (Hospitalization)
  Sender: FDA-Public Use
  Company Number: NL-ROCHE-1384922

PATIENT
  Age: 64 Year
  Sex: Male

DRUGS (3)
  1. CAPECITABINE [Suspect]
     Indication: GASTRIC CANCER
     Dosage: BID FOR 2 WEEKS, 3 WEEKS, BID FOR 5X, 5 WEEK
     Route: 048
     Dates: start: 20140409
  2. EPIRUBICIN [Suspect]
     Indication: GASTRIC CANCER
     Route: 042
     Dates: start: 20140409
  3. CISPLATIN [Suspect]
     Indication: GASTRIC CANCER
     Dosage: EVERY 3 WEEKS, EVERY 1 WEEKS,  5 WEEKS
     Route: 042
     Dates: start: 20140409

REACTIONS (3)
  - Orthostatic hypotension [Recovering/Resolving]
  - Dehydration [Unknown]
  - Hypomagnesaemia [Recovering/Resolving]
